FAERS Safety Report 8545354-X (Version None)
Quarter: 2012Q3

REPORT INFORMATION
  Report Type: 
  Country: None (occurrence: None)
  Receive Date: 20120719
  Receipt Date: 20120719
  Transmission Date: 20120928
  Serious: No
  Sender: FDA-Public Use
  Company Number: None

PATIENT
  Age: 77 Year
  Sex: Male
  Weight: 61.2356 kg

DRUGS (1)
  1. AZITHROMYCIN [Suspect]
     Indication: PNEUMONIA
     Dosage: AS PRESCRIBED 4 DAYS PO
     Route: 048
     Dates: start: 20120712, end: 20120715

REACTIONS (2)
  - REACTION TO AZO-DYES [None]
  - RASH GENERALISED [None]
